FAERS Safety Report 25424034 (Version 2)
Quarter: 2025Q2

REPORT INFORMATION
  Report Type: Spontaneous
  Country: DE (occurrence: DE)
  Receive Date: 20250611
  Receipt Date: 20250620
  Transmission Date: 20250716
  Serious: Yes (Hospitalization, Other)
  Sender: PFIZER
  Company Number: DE-PFIZER INC-202500119555

PATIENT
  Age: 75 Year
  Sex: Female

DRUGS (1)
  1. VELSIPITY [Suspect]
     Active Substance: ETRASIMOD ARGININE
     Indication: Colitis ulcerative
     Dates: start: 2025

REACTIONS (4)
  - Large intestine perforation [Unknown]
  - Septic shock [Unknown]
  - Peritonitis [Unknown]
  - Colitis [Unknown]

NARRATIVE: CASE EVENT DATE: 20250101
